FAERS Safety Report 7269300-4 (Version None)
Quarter: 2011Q1

REPORT INFORMATION
  Report Type: 
  Country: None (occurrence: None)
  Receive Date: 20110125
  Receipt Date: 20110120
  Transmission Date: 20110831
  Serious: No
  Sender: FDA-Public Use
  Company Number: 2010SP052744

PATIENT
  Age: 74 Year
  Sex: Female
  Weight: 37 kg

DRUGS (4)
  1. BUTIKINON [Concomitant]
  2. REMERON [Suspect]
     Indication: INSOMNIA
     Dosage: 7.5 MG; QD; PO
     Route: 048
     Dates: start: 20100930, end: 20100930
  3. REMERON [Suspect]
     Indication: DEPRESSION
     Dosage: 7.5 MG; QD; PO
     Route: 048
     Dates: start: 20100930, end: 20100930
  4. GASCON [Concomitant]

REACTIONS (1)
  - DIZZINESS [None]
